APPROVED DRUG PRODUCT: POTASSIUM CHLORIDE
Active Ingredient: POTASSIUM CHLORIDE
Strength: 10MEQ
Dosage Form/Route: CAPSULE, EXTENDED RELEASE;ORAL
Application: A205549 | Product #002
Applicant: STRIDES PHARMA GLOBAL PTE LTD
Approved: Dec 8, 2015 | RLD: No | RS: No | Type: DISCN